FAERS Safety Report 15739149 (Version 2)
Quarter: 2019Q1

REPORT INFORMATION
  Report Type: Spontaneous
  Country: DE (occurrence: DE)
  Receive Date: 20181219
  Receipt Date: 20190204
  Transmission Date: 20190417
  Serious: Yes (Hospitalization)
  Sender: FDA-Public Use
  Company Number: DE-009507513-1812DEU007987

PATIENT
  Sex: Female

DRUGS (1)
  1. KEYTRUDA [Suspect]
     Active Substance: PEMBROLIZUMAB
     Indication: BREAST CANCER METASTATIC
     Dosage: 200 MILLIGRAM, Q3W (EVERY21 DAYS)
     Dates: start: 201810, end: 201812

REACTIONS (2)
  - Skin toxicity [Unknown]
  - Product use in unapproved indication [Unknown]
